FAERS Safety Report 8802088 (Version 1)
Quarter: 2012Q4

REPORT INFORMATION
  Report Type: 
  Country: JP (occurrence: JP)
  Receive Date: 20120921
  Receipt Date: 20120921
  Transmission Date: 20130627
  Serious: Yes (Hospitalization)
  Sender: FDA-Public Use
  Company Number: JP-ROXANE LABORATORIES, INC.-2012-RO-01859RO

PATIENT
  Sex: Male
  Weight: 61 kg

DRUGS (1)
  1. METHOTREXATE [Suspect]
     Indication: RHEUMATOID ARTHRITIS
     Dates: start: 2001

REACTIONS (2)
  - Lymphoproliferative disorder [Recovered/Resolved]
  - General physical health deterioration [Unknown]
